FAERS Safety Report 9989216 (Version 1)
Quarter: 2014Q1

REPORT INFORMATION
  Report Type: Spontaneous
  Country: US (occurrence: US)
  Receive Date: 20140310
  Receipt Date: 20140310
  Transmission Date: 20141002
  Serious: Yes (Hospitalization)
  Sender: FDA-Public Use
  Company Number: US-BAYER-2014-033353

PATIENT
  Age: 47 Year
  Sex: Female
  Weight: 71.66 kg

DRUGS (7)
  1. YAZ [Suspect]
  2. LUNESTA [Concomitant]
     Dosage: 2 MG, UNK
  3. LORCET [Concomitant]
  4. OXYCODONE/APAP [Concomitant]
     Dosage: 5-325 MG
  5. FLEXERIL [Concomitant]
     Dosage: 10 MG, UNK
  6. CYCLOBENZAPRINE [Concomitant]
     Dosage: 10 MG, UNK
  7. ULTRAM [Concomitant]
     Dosage: 27.5/325 MG

REACTIONS (2)
  - Deep vein thrombosis [Recovered/Resolved]
  - Pulmonary embolism [None]
